FAERS Safety Report 8758221 (Version 1)
Quarter: 2012Q4

REPORT INFORMATION
  Report Type: 
  Country: US (occurrence: US)
  Receive Date: 20120829
  Receipt Date: 20120829
  Transmission Date: 20130627
  Serious: Yes (Other)
  Sender: FDA-Public Use
  Company Number: GXBR2012US001802

PATIENT
  Age: 63 Year
  Sex: Female
  Weight: 62.59 kg

DRUGS (1)
  1. AMOXICILLIN AND CLAVULANATE POTASSIUM TABLETS USP [Suspect]
     Indication: KIDNEY INFECTION
     Dosage: 875mg amoxicillin and 125mg clavulanate, TID
     Dates: start: 201206, end: 20120724

REACTIONS (4)
  - Thrombosis [Recovering/Resolving]
  - Pain in extremity [Recovering/Resolving]
  - Anaemia [Not Recovered/Not Resolved]
  - Asthenia [Not Recovered/Not Resolved]
